FAERS Safety Report 14224632 (Version 1)
Quarter: 2017Q4

REPORT INFORMATION
  Report Type: Spontaneous
  Country: CA (occurrence: CA)
  Receive Date: 20171127
  Receipt Date: 20171127
  Transmission Date: 20180321
  Serious: Yes (Other)
  Sender: FDA-Public Use
  Company Number: CA-ORION CORPORATION ORION PHARMA-TREX2017-3801

PATIENT
  Age: 61 Year
  Sex: Female

DRUGS (8)
  1. CELEBREX [Concomitant]
     Active Substance: CELECOXIB
     Route: 065
  2. APO-LEFLUNOMIDE [Suspect]
     Active Substance: LEFLUNOMIDE
     Route: 065
  3. METHOTREXATE (TRADE NAME UNKNOWN) [Suspect]
     Active Substance: METHOTREXATE
     Indication: RHEUMATOID ARTHRITIS
     Route: 065
  4. ENBREL [Suspect]
     Active Substance: ETANERCEPT
     Indication: RHEUMATOID ARTHRITIS
     Route: 065
  5. XELJAN [Concomitant]
     Route: 065
  6. ACTEMRA [Suspect]
     Active Substance: TOCILIZUMAB
     Route: 065
  7. SIMPONI [Suspect]
     Active Substance: GOLIMUMAB
     Route: 058
  8. PREDNISONE. [Concomitant]
     Active Substance: PREDNISONE
     Route: 065

REACTIONS (8)
  - Musculoskeletal stiffness [Recovering/Resolving]
  - Gait disturbance [Recovering/Resolving]
  - Toe operation [Recovering/Resolving]
  - Hypercholesterolaemia [Recovering/Resolving]
  - Hypertension [Recovering/Resolving]
  - Breast cyst excision [Recovering/Resolving]
  - Impaired healing [Recovering/Resolving]
  - Drug ineffective [Unknown]
